FAERS Safety Report 26104074 (Version 1)
Quarter: 2025Q4

REPORT INFORMATION
  Report Type: Spontaneous
  Country: JP (occurrence: JP)
  Receive Date: 20251129
  Receipt Date: 20251129
  Transmission Date: 20260118
  Serious: Yes (Other)
  Sender: AMGEN
  Company Number: JP-AMGEN-JPNSP2025165611

PATIENT
  Age: 8 Decade
  Sex: Female

DRUGS (7)
  1. BLINCYTO [Suspect]
     Active Substance: BLINATUMOMAB
     Indication: Acute lymphocytic leukaemia
     Dosage: UNK (9 MCG FOR 7 DAYS IN TOTAL)
     Route: 040
     Dates: start: 20250807, end: 202508
  2. BLINCYTO [Suspect]
     Active Substance: BLINATUMOMAB
     Dosage: UNK, INJECTION, DOSE INCREASED
     Route: 040
     Dates: start: 20250812, end: 202508
  3. BLINCYTO [Suspect]
     Active Substance: BLINATUMOMAB
     Dosage: UNK, DOSE INCREASED, INJECTION
     Route: 040
     Dates: start: 20250817, end: 20250818
  4. BLINCYTO [Suspect]
     Active Substance: BLINATUMOMAB
     Dosage: 9 MICROGRAM, INJECTION
     Route: 040
     Dates: start: 20250909, end: 2025
  5. BLINCYTO [Suspect]
     Active Substance: BLINATUMOMAB
     Dosage: 9 MICROGRAM, INJECTION
     Route: 040
     Dates: start: 20251025, end: 2025
  6. BLINCYTO [Suspect]
     Active Substance: BLINATUMOMAB
     Dosage: 28 MICROGRAM, INJECTION
     Route: 040
     Dates: start: 2025
  7. PREDNISOLONE [Concomitant]
     Active Substance: PREDNISOLONE

REACTIONS (7)
  - Blast cell count increased [Unknown]
  - Tumour lysis syndrome [Recovered/Resolved]
  - Platelet count decreased [Recovering/Resolving]
  - Neutrophil count decreased [Unknown]
  - Cytokine release syndrome [Recovered/Resolved]
  - Liver disorder [Recovered/Resolved]
  - Feeling abnormal [Unknown]

NARRATIVE: CASE EVENT DATE: 20250101
